FAERS Safety Report 16340151 (Version 1)
Quarter: 2019Q2

REPORT INFORMATION
  Report Type: Spontaneous
  Country: FR (occurrence: FR)
  Receive Date: 20190522
  Receipt Date: 20190522
  Transmission Date: 20190711
  Serious: Yes (Hospitalization)
  Sender: FDA-Public Use
  Company Number: FR-AUROBINDO-AUR-APL-2019-026466

PATIENT

DRUGS (2)
  1. RISPERIDONE. [Suspect]
     Active Substance: RISPERIDONE
     Indication: PRODUCT USED FOR UNKNOWN INDICATION
     Dosage: UNK
     Route: 065
  2. ABILIFY MAINTENA [Suspect]
     Active Substance: ARIPIPRAZOLE
     Indication: PSYCHOTIC DISORDER
     Dosage: 400 MILLIGRAM, PER MONTH
     Route: 030
     Dates: start: 201805

REACTIONS (5)
  - Product use in unapproved indication [Unknown]
  - Product supply issue [Unknown]
  - Malaise [Unknown]
  - Incorrect product administration duration [Unknown]
  - Drug monitoring procedure incorrectly performed [Unknown]
